FAERS Safety Report 9127590 (Version 1)
Quarter: 2013Q1

REPORT INFORMATION
  Report Type: Spontaneous
  Country: US (occurrence: US)
  Receive Date: 20130125
  Receipt Date: 20130125
  Transmission Date: 20140127
  Serious: Yes (Other)
  Sender: FDA-Public Use
  Company Number: US-ROCHE-1044718

PATIENT
  Sex: Female
  Weight: 71.73 kg

DRUGS (18)
  1. XOLAIR [Suspect]
     Indication: ASTHMA
     Route: 058
     Dates: start: 2008, end: 2012
  2. XOLAIR [Suspect]
     Route: 058
     Dates: start: 2012
  3. PANTOPRAZOL [Concomitant]
     Indication: GASTROOESOPHAGEAL REFLUX DISEASE
     Route: 048
  4. BONIVA [Concomitant]
     Indication: OSTEOPOROSIS
     Route: 048
  5. ASMANEX [Concomitant]
     Indication: ASTHMA
     Route: 065
  6. NYSTATIN [Concomitant]
     Indication: FUNGAL INFECTION
     Dosage: 100000
     Route: 048
  7. XOPENEX [Concomitant]
     Indication: ASTHMA
     Route: 065
  8. SYNTHROID [Concomitant]
     Indication: HYPOTHYROIDISM
     Route: 048
  9. BABY ASPIRIN [Concomitant]
     Route: 048
  10. CARDIZEM [Concomitant]
     Route: 048
  11. SERTRALINE [Concomitant]
     Indication: ANXIETY
     Route: 048
  12. CLARINEX [Concomitant]
     Indication: HYPERSENSITIVITY
     Route: 048
     Dates: start: 20130101
  13. ATORVASTATIN [Concomitant]
     Indication: BLOOD CHOLESTEROL
     Route: 048
  14. MUCINEX [Concomitant]
     Indication: HYPERSENSITIVITY
     Route: 048
  15. ALIGN (UNK INGREDIENTS) [Concomitant]
     Route: 048
  16. BIOTIN [Concomitant]
     Indication: ALOPECIA
     Route: 048
     Dates: start: 2012
  17. METROGEL [Concomitant]
     Indication: ROSACEA
     Dosage: 1%
     Route: 061
  18. SULFACETAMIDE [Concomitant]
     Indication: ACNE
     Route: 061

REACTIONS (3)
  - Articular calcification [Recovered/Resolved]
  - Injection site calcification [Not Recovered/Not Resolved]
  - Rotator cuff syndrome [Not Recovered/Not Resolved]
